FAERS Safety Report 7312976-3 (Version None)
Quarter: 2011Q1

REPORT INFORMATION
  Report Type: 
  Country: None (occurrence: None)
  Receive Date: 20110224
  Receipt Date: 20110216
  Transmission Date: 20110831
  Serious: Yes (Hospitalization)
  Sender: FDA-Public Use
  Company Number: JP-BRISTOL-MYERS SQUIBB COMPANY-15509086

PATIENT
  Age: 62 Year
  Sex: Female
  Weight: 47 kg

DRUGS (9)
  1. METHOTREXATE [Suspect]
     Dosage: 31AUG2005-11OCT2005,4MG 12OCT2005-5OCT2010,6MG 06OCT2010-16JAN2011,8MG 17JAN2011,6MG
     Dates: start: 20050831
  2. PREDONINE [Concomitant]
     Dosage: 09OCT10-28NOV10,6MG 29NOV10-ONG,4MG
     Dates: start: 20101009
  3. BENET [Concomitant]
     Indication: OSTEOPOROSIS
  4. FOLIAMIN [Concomitant]
  5. GASTER [Concomitant]
     Indication: GASTRITIS
  6. ALFAROL [Concomitant]
     Indication: OSTEOPOROSIS
  7. LOXONIN [Concomitant]
     Indication: RHEUMATOID ARTHRITIS
  8. MUCOSTA [Concomitant]
     Indication: GASTRITIS
  9. ORENCIA [Suspect]
     Indication: RHEUMATOID ARTHRITIS
     Dosage: 3TIMES A TOTAL ALSO ADMINISTERED ON 15NOV11,29NOV10,17JAN11,14FEB11
     Route: 041
     Dates: start: 20101102

REACTIONS (1)
  - CYSTITIS HAEMORRHAGIC [None]
